FAERS Safety Report 4937359-2 (Version None)
Quarter: 2006Q1

REPORT INFORMATION
  Report Type: 
  Country: None (occurrence: None)
  Receive Date: 20060309
  Receipt Date: 20060223
  Transmission Date: 20060701
  Serious: Yes (Hospitalization)
  Sender: FDA-Public Use
  Company Number: JP-BOEHRINGER INGELHEIM PHARMACEUTICALS, INC.-2006-BP-02061NB

PATIENT
  Sex: Male

DRUGS (11)
  1. MICARDIS [Suspect]
     Indication: HYPERTENSION
     Route: 048
     Dates: end: 20060215
  2. ACTOS [Suspect]
     Indication: DIABETES MELLITUS
     Route: 048
     Dates: start: 20050112, end: 20060215
  3. SEOGRUMIN (GLIBENCKAMIDE) [Concomitant]
     Indication: DIABETES MELLITUS
     Route: 048
     Dates: start: 20050930, end: 20060215
  4. CALBLOCK [Concomitant]
     Indication: HYPERTENSION
     Route: 048
     Dates: start: 20060120, end: 20060215
  5. MOBIC [Concomitant]
     Indication: SPINAL OSTEOARTHRITIS
     Route: 048
     Dates: start: 20040616
  6. GLAKAY [Concomitant]
     Route: 048
     Dates: start: 20011105
  7. URSO [Concomitant]
     Indication: HEPATITIS C
     Route: 048
     Dates: start: 20010905
  8. MAGMITT [Concomitant]
     Indication: CONSTIPATION
     Route: 048
     Dates: start: 20020701
  9. CYANOCOBALAMIN [Concomitant]
     Route: 048
     Dates: start: 20050523, end: 20060215
  10. MYSLEE [Concomitant]
     Indication: INSOMNIA
     Route: 048
     Dates: start: 20060111
  11. YODEL-S (SENNA EXTRACT [Concomitant]
     Indication: CONSTIPATION
     Route: 048
     Dates: start: 20020701

REACTIONS (2)
  - BLOOD PRESSURE SYSTOLIC INCREASED [None]
  - HYPOGLYCAEMIA [None]
